FAERS Safety Report 16596243 (Version 1)
Quarter: 2019Q3

REPORT INFORMATION
  Report Type: Spontaneous
  Country: US (occurrence: US)
  Receive Date: 20190718
  Receipt Date: 20190718
  Transmission Date: 20191004
  Serious: Yes (Disabling)
  Sender: FDA-Public Use
  Company Number: None

PATIENT
  Age: 74 Year
  Sex: Female
  Weight: 63.9 kg

DRUGS (1)
  1. CIPROFLOXACIN TABLETS [Suspect]
     Active Substance: CIPROFLOXACIN
     Indication: GASTROINTESTINAL INFECTION
     Dosage: ?          QUANTITY:10 TABLET(S);?
     Route: 048
     Dates: start: 20190620, end: 20190630

REACTIONS (4)
  - Hypoaesthesia [None]
  - Facial paralysis [None]
  - Tendon disorder [None]
  - Neurotoxicity [None]

NARRATIVE: CASE EVENT DATE: 20190714
